FAERS Safety Report 6139995-7 (Version None)
Quarter: 2009Q1

REPORT INFORMATION
  Report Type: 
  Country: None (occurrence: None)
  Receive Date: 20090331
  Receipt Date: 20090331
  Transmission Date: 20090719
  Serious: No
  Sender: FDA-Public Use
  Company Number: None

PATIENT
  Age: 66 Year
  Sex: Female
  Weight: 102.0593 kg

DRUGS (1)
  1. ACTONEL [Suspect]
     Indication: OSTEOPOROSIS POSTMENOPAUSAL
     Dosage: 1 PILL MONTHLY PO
     Route: 048
     Dates: start: 20090125, end: 20090125

REACTIONS (3)
  - ARTHRALGIA [None]
  - MYALGIA [None]
  - WALKING AID USER [None]
